FAERS Safety Report 7538119-9 (Version None)
Quarter: 2011Q2

REPORT INFORMATION
  Report Type: 
  Country: None (occurrence: None)
  Receive Date: 20110609
  Receipt Date: 20010813
  Transmission Date: 20111010
  Serious: Yes (Death, Other)
  Sender: FDA-Public Use
  Company Number: PHFR2001GB01923

PATIENT
  Sex: Male

DRUGS (3)
  1. CLOZAPINE [Suspect]
     Indication: SCHIZOAFFECTIVE DISORDER
     Dosage: 400 MG, QD
     Route: 048
     Dates: start: 19990128
  2. WARFARIN SODIUM [Concomitant]
     Indication: DEEP VEIN THROMBOSIS
  3. GLICLAZIDE [Concomitant]
     Dosage: 160 MG, QD
     Route: 048
     Dates: start: 20000501

REACTIONS (2)
  - DIABETES MELLITUS [None]
  - PULMONARY EMBOLISM [None]
